FAERS Safety Report 7414731-2 (Version None)
Quarter: 2011Q2

REPORT INFORMATION
  Report Type: 
  Country: None (occurrence: None)
  Receive Date: 20110406
  Receipt Date: 20110329
  Transmission Date: 20111010
  Serious: Yes (Other)
  Sender: FDA-Public Use
  Company Number: A0920479A

PATIENT
  Sex: Female

DRUGS (1)
  1. CALCIUM CARBONATE [Suspect]
     Indication: DYSPEPSIA

REACTIONS (3)
  - DRUG EXPOSURE DURING PREGNANCY [None]
  - DRUG DEPENDENCE [None]
  - DRUG ADMINISTRATION ERROR [None]
